FAERS Safety Report 16777461 (Version 1)
Quarter: 2019Q3

REPORT INFORMATION
  Report Type: Spontaneous
  Country: US (occurrence: US)
  Receive Date: 20190905
  Receipt Date: 20190905
  Transmission Date: 20191005
  Serious: Yes (Life-Threatening, Other)
  Sender: FDA-Public Use
  Company Number: US-PFIZER INC-2019380552

PATIENT
  Sex: Female

DRUGS (1)
  1. LYRICA [Suspect]
     Active Substance: PREGABALIN
     Dosage: UNK

REACTIONS (12)
  - Bedridden [Unknown]
  - Erythema [Unknown]
  - Coma [Unknown]
  - Malaise [Unknown]
  - Pain [Unknown]
  - Chemical burn [Unknown]
  - Deafness [Unknown]
  - Blindness [Unknown]
  - Paralysis [Unknown]
  - Myocardial infarction [Unknown]
  - Gait inability [Unknown]
  - Blood sodium decreased [Unknown]
